FAERS Safety Report 15680464 (Version 1)
Quarter: 2018Q4

REPORT INFORMATION
  Report Type: Report from Study
  Country: ZA (occurrence: ZA)
  Receive Date: 20181203
  Receipt Date: 20181203
  Transmission Date: 20190205
  Serious: Yes (Death, Hospitalization, Other)
  Sender: FDA-Public Use
  Company Number: ZA-AMGEN-ZAFSL2018172077

PATIENT
  Age: 57 Year
  Sex: Female

DRUGS (2)
  1. ARANESP [Suspect]
     Active Substance: DARBEPOETIN ALFA
     Indication: CHRONIC KIDNEY DISEASE
     Dosage: 40 MUG, Q2WK
     Route: 058
     Dates: start: 201601, end: 201809
  2. ARANESP [Suspect]
     Active Substance: DARBEPOETIN ALFA
     Indication: ANAEMIA

REACTIONS (1)
  - Deep vein thrombosis [Fatal]
